FAERS Safety Report 13089312 (Version 4)
Quarter: 2017Q1

REPORT INFORMATION
  Report Type: Report from Study
  Country: FR (occurrence: FR)
  Receive Date: 20170105
  Receipt Date: 20170228
  Transmission Date: 20170428
  Serious: Yes (Death, Other)
  Sender: FDA-Public Use
  Company Number: FR-TEVA-725727ISR

PATIENT
  Age: 62 Year
  Sex: Male

DRUGS (23)
  1. DICLOFENAC SODIUM. [Suspect]
     Active Substance: DICLOFENAC SODIUM
     Dosage: 2 MILLIGRAM DAILY;
     Route: 065
     Dates: start: 20160113, end: 20160304
  2. PROGRAF [Suspect]
     Active Substance: TACROLIMUS\TACROLIMUS ANHYDROUS
     Dosage: 4 MILLIGRAM DAILY;
     Dates: start: 20151120, end: 20151204
  3. MYFORTIC [Suspect]
     Active Substance: MYCOPHENOLATE SODIUM
     Dosage: 720 MILLIGRAM DAILY;
     Route: 065
     Dates: start: 20140111, end: 20140811
  4. PROGRAF [Suspect]
     Active Substance: TACROLIMUS\TACROLIMUS ANHYDROUS
     Dosage: 2 MILLIGRAM DAILY;
     Dates: start: 20160113, end: 20160304
  5. PROGRAF [Suspect]
     Active Substance: TACROLIMUS\TACROLIMUS ANHYDROUS
     Dosage: 2.5 MILLIGRAM DAILY;
     Dates: start: 20160305, end: 20160322
  6. DICLOFENAC SODIUM. [Suspect]
     Active Substance: DICLOFENAC SODIUM
     Dosage: 2.5 MILLIGRAM DAILY;
     Route: 065
     Dates: start: 20160305, end: 20160322
  7. PROGRAF [Suspect]
     Active Substance: TACROLIMUS\TACROLIMUS ANHYDROUS
     Dosage: 10 MILLIGRAM DAILY;
     Route: 065
     Dates: start: 20140125, end: 20140831
  8. IMUREL [Suspect]
     Active Substance: AZATHIOPRINE SODIUM
     Dosage: 100 MILLIGRAM DAILY;
     Route: 065
     Dates: start: 20150718, end: 20150906
  9. PROGRAF [Suspect]
     Active Substance: TACROLIMUS\TACROLIMUS ANHYDROUS
     Dosage: 1 MILLIGRAM DAILY;
     Route: 048
     Dates: start: 20151008, end: 20151019
  10. MYFORTIC [Suspect]
     Active Substance: MYCOPHENOLATE SODIUM
     Dosage: 360 MILLIGRAM DAILY;
     Route: 065
     Dates: start: 20150522, end: 20150717
  11. PROGRAF [Suspect]
     Active Substance: TACROLIMUS\TACROLIMUS ANHYDROUS
     Dosage: 2 MILLIGRAM DAILY;
     Route: 065
     Dates: start: 20160323
  12. PROGRAF [Suspect]
     Active Substance: TACROLIMUS\TACROLIMUS ANHYDROUS
     Dosage: 6 MILLIGRAM DAILY;
     Route: 065
     Dates: start: 20151020, end: 20151119
  13. CERTICAN [Suspect]
     Active Substance: EVEROLIMUS
     Indication: LIVER TRANSPLANT
     Dosage: 1.5 MILLIGRAM DAILY;
     Route: 048
     Dates: start: 20151205, end: 20160112
  14. CORTANCYL [Suspect]
     Active Substance: PREDNISONE
     Dosage: 5 MILLIGRAM DAILY;
     Route: 065
     Dates: start: 20140125, end: 20150428
  15. DICLOFENAC SODIUM. [Suspect]
     Active Substance: DICLOFENAC SODIUM
     Dosage: 6 MILLIGRAM DAILY;
     Route: 048
     Dates: start: 20140903, end: 20140903
  16. CORTANCYL [Suspect]
     Active Substance: PREDNISONE
     Dosage: 2.5 MILLIGRAM DAILY;
     Dates: start: 20150429, end: 20151119
  17. MERCAPTOPURINE. [Suspect]
     Active Substance: MERCAPTOPURINE
     Dosage: 50 MILLIGRAM DAILY;
     Route: 065
     Dates: start: 20150910
  18. DICLOFENAC SODIUM. [Suspect]
     Active Substance: DICLOFENAC SODIUM
     Dosage: 2 MILLIGRAM DAILY;
     Route: 065
     Dates: start: 20160323
  19. PROGRAF [Suspect]
     Active Substance: TACROLIMUS\TACROLIMUS ANHYDROUS
     Indication: IMMUNOSUPPRESSION
     Dosage: 8 MILLIGRAM DAILY;
     Route: 065
     Dates: start: 20140901, end: 20140902
  20. CORTANCYL [Suspect]
     Active Substance: PREDNISONE
     Dosage: 40 MILLIGRAM DAILY;
     Route: 065
     Dates: start: 20151120
  21. DICLOFENAC SODIUM. [Suspect]
     Active Substance: DICLOFENAC SODIUM
     Indication: PRODUCT USED FOR UNKNOWN INDICATION
     Dosage: 8 MILLIGRAM DAILY;
     Route: 065
     Dates: start: 20140901, end: 20140902
  22. DICLOFENAC SODIUM. [Suspect]
     Active Substance: DICLOFENAC SODIUM
     Dosage: 4 MILLIGRAM DAILY;
     Route: 065
     Dates: start: 20151120, end: 20151204
  23. MYFORTIC [Suspect]
     Active Substance: MYCOPHENOLATE SODIUM
     Dosage: 720 MILLIGRAM DAILY;
     Route: 065
     Dates: start: 20140905, end: 20150521

REACTIONS (5)
  - Diarrhoea [Fatal]
  - Weight decreased [Fatal]
  - Chronic kidney disease [Fatal]
  - Back pain [Fatal]
  - Renal impairment [Fatal]

NARRATIVE: CASE EVENT DATE: 20150123
